FAERS Safety Report 7505690-2 (Version None)
Quarter: 2011Q2

REPORT INFORMATION
  Report Type: 
  Country: None (occurrence: None)
  Receive Date: 20110526
  Receipt Date: 20110524
  Transmission Date: 20111010
  Serious: Yes (Other)
  Sender: FDA-Public Use
  Company Number: US-PFIZER INC-2011062592

PATIENT
  Sex: Male
  Weight: 90.703 kg

DRUGS (14)
  1. CHANTIX [Suspect]
     Indication: SMOKING CESSATION THERAPY
     Dosage: 0.5 MG, 1X/DAY
     Route: 048
     Dates: start: 20101123
  2. CHANTIX [Suspect]
     Dosage: 1 MG, 2X/DAY
     Route: 048
  3. TRIHEXYPHENIDYL [Concomitant]
     Dosage: UNK
  4. TRAZODONE [Concomitant]
     Dosage: UNK
  5. HYDROCHLOROTHIAZIDE [Concomitant]
     Indication: HYPERTENSION
     Dosage: 12.5 MG, 1X/DAY
     Route: 048
  6. LISINOPRIL AND HYDROCHLOROTHIAZIDE [Concomitant]
     Indication: CARDIAC DISORDER
     Dosage: UNK
  7. IBUPROFEN [Concomitant]
     Dosage: UNK
  8. VENTOLIN [Concomitant]
     Indication: ASTHMA
     Dosage: UNK
  9. NASONEX [Concomitant]
     Dosage: UNK
  10. DOXYCYCLINE [Concomitant]
     Dosage: 100 MG, 2X/DAY
  11. ATENOLOL [Concomitant]
     Indication: HYPERTENSION
     Dosage: 50 MG, 2X/DAY
     Route: 048
  12. ATENOLOL [Concomitant]
     Dosage: UNK
  13. CLOZAPINE [Concomitant]
     Dosage: UNK
  14. OMEPRAZOLE [Concomitant]
     Dosage: UNK

REACTIONS (5)
  - HALLUCINATION [None]
  - CONFUSIONAL STATE [None]
  - ANGER [None]
  - ANXIETY [None]
  - BLOOD PRESSURE ABNORMAL [None]
